FAERS Safety Report 8926545 (Version 1)
Quarter: 2012Q4

REPORT INFORMATION
  Report Type: 
  Country: US (occurrence: US)
  Receive Date: 20121127
  Receipt Date: 20121127
  Transmission Date: 20130627
  Serious: Yes (Hospitalization)
  Sender: FDA-Public Use
  Company Number: US-BAYER-2012-120726

PATIENT
  Age: 44 Year
  Sex: Female

DRUGS (6)
  1. BEYAZ [Suspect]
  2. TEMAZEPAM [Concomitant]
     Dosage: 30 mg, UNK
  3. WELLBUTRIN [Concomitant]
     Dosage: 300 mg, DAILY
  4. SINGULAIR [Concomitant]
     Dosage: 10 mg, tablet each evening
     Route: 048
  5. ZOFRAN [Concomitant]
  6. MORPHINE [Concomitant]

REACTIONS (2)
  - Deep vein thrombosis [Recovered/Resolved]
  - Pulmonary embolism [Recovered/Resolved]
